FAERS Safety Report 5911114-9 (Version None)
Quarter: 2008Q4

REPORT INFORMATION
  Report Type: 
  Country: None (occurrence: None)
  Receive Date: 20081007
  Receipt Date: 20080107
  Transmission Date: 20090506
  Serious: No
  Sender: FDA-Public Use
  Company Number: US-BRISTOL-MYERS SQUIBB COMPANY-14032643

PATIENT
  Age: 67 Year
  Sex: Male
  Weight: 100 kg

DRUGS (4)
  1. AVAPRO [Suspect]
     Indication: HYPERTENSION
     Route: 048
  2. COREG [Suspect]
  3. IMDUR [Suspect]
  4. XANAX [Suspect]

REACTIONS (1)
  - MICTURITION URGENCY [None]
